FAERS Safety Report 5573014-6 (Version None)
Quarter: 2007Q4

REPORT INFORMATION
  Report Type: 
  Country: None (occurrence: None)
  Receive Date: 20071224
  Receipt Date: 20071212
  Transmission Date: 20080405
  Serious: Yes (Hospitalization)
  Sender: FDA-Public Use
  Company Number: FR-JNJFOC-20060104305

PATIENT
  Age: 59 Year
  Sex: Male

DRUGS (16)
  1. TOPALGIC LP [Suspect]
     Indication: DRUG USE FOR UNKNOWN INDICATION
     Route: 048
  2. RISPERDAL [Suspect]
     Indication: DRUG USE FOR UNKNOWN INDICATION
     Route: 048
  3. IMOVANE [Suspect]
     Indication: DRUG USE FOR UNKNOWN INDICATION
     Route: 048
  4. SKENAN [Suspect]
     Indication: DRUG USE FOR UNKNOWN INDICATION
     Route: 048
  5. ATARAX [Suspect]
     Indication: DRUG USE FOR UNKNOWN INDICATION
     Route: 048
  6. DEPAMIDE [Suspect]
     Indication: DRUG USE FOR UNKNOWN INDICATION
     Route: 048
  7. NOCTRAN [Suspect]
     Indication: DRUG USE FOR UNKNOWN INDICATION
     Route: 048
  8. MIRTAZAPINE [Suspect]
     Indication: DRUG USE FOR UNKNOWN INDICATION
  9. NEURONTIN [Suspect]
     Indication: DRUG USE FOR UNKNOWN INDICATION
     Route: 048
  10. ALDACTONE [Concomitant]
     Route: 065
  11. DIFFU K [Concomitant]
     Route: 065
  12. BURINEX [Concomitant]
     Route: 065
  13. TAHOR [Concomitant]
     Route: 065
  14. EUPRESSYL [Concomitant]
     Route: 065
  15. DOLIPRANE [Concomitant]
     Route: 065
  16. ALLOPURINOL [Concomitant]
     Route: 065

REACTIONS (3)
  - DRUG ABUSE [None]
  - DRUG DEPENDENCE [None]
  - GASTROINTESTINAL DISORDER [None]
